FAERS Safety Report 9984768 (Version 2)
Quarter: 2014Q1

REPORT INFORMATION
  Report Type: Spontaneous
  Country: US (occurrence: US)
  Receive Date: 20140307
  Receipt Date: 20140318
  Transmission Date: 20141002
  Serious: Yes (Death)
  Sender: FDA-Public Use
  Company Number: US-ACTELION-A-US2014-95540

PATIENT
  Age: 38 Year
  Sex: Female

DRUGS (3)
  1. TRACLEER [Suspect]
     Indication: PULMONARY ARTERIAL HYPERTENSION
     Dosage: UNK
     Route: 048
     Dates: end: 20140117
  2. ADCIRCA [Concomitant]
  3. REMODULIN [Concomitant]

REACTIONS (4)
  - Sepsis [Fatal]
  - Device related infection [Fatal]
  - Staphylococcal infection [Fatal]
  - Right ventricular failure [Fatal]
